FAERS Safety Report 17886970 (Version 2)
Quarter: 2020Q3

REPORT INFORMATION
  Report Type: Report from Study
  Country: None (occurrence: US)
  Receive Date: 20200612
  Receipt Date: 20200803
  Transmission Date: 20201103
  Serious: Yes (Hospitalization, Other)
  Sender: FDA-Public Use
  Company Number: US-ABBVIE-20K-163-3369084-00

PATIENT
  Sex: Female

DRUGS (4)
  1. HUMIRA [Suspect]
     Active Substance: ADALIMUMAB
     Dosage: DAY 2: LOADING
     Route: 058
     Dates: start: 20200414, end: 20200414
  2. HUMIRA [Suspect]
     Active Substance: ADALIMUMAB
     Dosage: RESTARTED
     Route: 058
     Dates: start: 20200605
  3. HUMIRA [Suspect]
     Active Substance: ADALIMUMAB
     Indication: CROHN^S DISEASE
     Dosage: DAY 15
     Route: 058
     Dates: start: 20200427, end: 2020
  4. HUMIRA [Suspect]
     Active Substance: ADALIMUMAB
     Indication: CROHN^S DISEASE
     Dosage: DAY 1: LOADING DOSE
     Route: 058
     Dates: start: 20200413, end: 20200413

REACTIONS (14)
  - Constipation [Recovering/Resolving]
  - Pruritus [Not Recovered/Not Resolved]
  - Abdominal pain upper [Recovering/Resolving]
  - Arthralgia [Not Recovered/Not Resolved]
  - Decreased appetite [Recovering/Resolving]
  - Injection site pain [Not Recovered/Not Resolved]
  - Abdominal discomfort [Unknown]
  - Fear [Recovering/Resolving]
  - Depressed mood [Recovering/Resolving]
  - Abnormal faeces [Unknown]
  - Adverse food reaction [Unknown]
  - Anxiety [Recovering/Resolving]
  - Gastrointestinal oedema [Unknown]
  - Pulmonary thrombosis [Unknown]

NARRATIVE: CASE EVENT DATE: 2020
